FAERS Safety Report 14365185 (Version 2)
Quarter: 2018Q1

REPORT INFORMATION
  Report Type: Spontaneous
  Country: US (occurrence: US)
  Receive Date: 20180108
  Receipt Date: 20180313
  Transmission Date: 20180509
  Serious: No
  Sender: FDA-Public Use
  Company Number: US-ROCHE-2021352

PATIENT
  Age: 60 Year
  Sex: Male
  Weight: 75.82 kg

DRUGS (6)
  1. TECENTRIQ [Suspect]
     Active Substance: ATEZOLIZUMAB
     Indication: NON-SMALL CELL LUNG CANCER
     Route: 042
     Dates: start: 20170721
  2. TECENTRIQ [Suspect]
     Active Substance: ATEZOLIZUMAB
     Indication: ADENOCARCINOMA
  3. ALIMTA [Concomitant]
     Active Substance: PEMETREXED DISODIUM
     Route: 065
     Dates: end: 201706
  4. FENTANYL. [Concomitant]
     Active Substance: FENTANYL
     Indication: PAIN
     Dosage: DOSE- 37 MCG/HR FOR BASELINE PAIN
     Route: 065
  5. OXYCONTIN [Concomitant]
     Active Substance: OXYCODONE HYDROCHLORIDE
     Indication: BREAKTHROUGH PAIN
     Route: 065
  6. CARBOPLATIN. [Concomitant]
     Active Substance: CARBOPLATIN
     Route: 065
     Dates: end: 201706

REACTIONS (7)
  - Cough [Unknown]
  - Gastrointestinal pain [Recovered/Resolved]
  - Flank pain [Unknown]
  - Decreased appetite [Unknown]
  - Anaemia [Unknown]
  - Tumour compression [Unknown]
  - Back pain [Recovering/Resolving]

NARRATIVE: CASE EVENT DATE: 20171016
